FAERS Safety Report 7752301-7 (Version None)
Quarter: 2011Q3

REPORT INFORMATION
  Report Type: 
  Country: None (occurrence: None)
  Receive Date: 20110915
  Receipt Date: 20110907
  Transmission Date: 20111222
  Serious: Yes (Disabling)
  Sender: FDA-Public Use
  Company Number: FR-ASTELLAS-2011EU006172

PATIENT
  Sex: Female

DRUGS (2)
  1. MYCOPHENOLATE MOFETIL [Concomitant]
     Indication: IMMUNOSUPPRESSION
     Dosage: UNK
     Route: 065
  2. PROGRAF [Suspect]
     Indication: RENAL TRANSPLANT
     Dosage: 5 MG, UNKNOWN/D
     Route: 048

REACTIONS (2)
  - AFFECTIVE DISORDER [None]
  - EMOTIONAL DISORDER [None]
